FAERS Safety Report 26141221 (Version 1)
Quarter: 2025Q4

REPORT INFORMATION
  Report Type: Spontaneous
  Country: EU (occurrence: EU)
  Receive Date: 20251210
  Receipt Date: 20251210
  Transmission Date: 20260118
  Serious: Yes (Life-Threatening, Other)
  Sender: ASTELLAS
  Company Number: None

PATIENT
  Age: 5 Year
  Sex: Female
  Weight: 22 kg

DRUGS (4)
  1. AMPHOTERICIN B [Suspect]
     Active Substance: AMPHOTERICIN B
     Indication: Acute myeloid leukaemia recurrent
     Dosage: 60 MG EVERY 14 DAYS
     Route: 042
     Dates: start: 20250811, end: 20250912
  2. URSODIOL [Concomitant]
     Active Substance: URSODIOL
     Indication: Chemotherapy side effect prophylaxis
     Dosage: DAILY DOSE: 600 MG EVERY 1 DAY
     Route: 048
     Dates: start: 20250910
  3. PROBENECID [Concomitant]
     Active Substance: PROBENECID
     Indication: Nephroprotective therapy
     Dosage: DAILY DOSE: 1500 MG EVERY 1 DAY
     Route: 048
     Dates: start: 20250910
  4. CIDOFOVIR [Concomitant]
     Active Substance: CIDOFOVIR
     Indication: Product used for unknown indication
     Dosage: DAILY DOSE: 50 MG EVERY 2 DAYS
     Route: 042
     Dates: start: 20250910

REACTIONS (1)
  - Anaphylactic reaction [Recovered/Resolved]

NARRATIVE: CASE EVENT DATE: 20250811
